FAERS Safety Report 12608461 (Version 2)
Quarter: 2016Q3

REPORT INFORMATION
  Report Type: Spontaneous
  Country: BR (occurrence: BR)
  Receive Date: 20160729
  Receipt Date: 20160826
  Transmission Date: 20161109
  Serious: Yes (Other)
  Sender: FDA-Public Use
  Company Number: PHHY2016BR104249

PATIENT
  Age: 41 Year
  Sex: Male
  Weight: 75.8 kg

DRUGS (2)
  1. SANDIMMUN [Suspect]
     Active Substance: CYCLOSPORINE
     Indication: PRODUCT USED FOR UNKNOWN INDICATION
     Dosage: 75 MG, Q12H
     Route: 042
     Dates: start: 20160612
  2. SANDIMMUN [Suspect]
     Active Substance: CYCLOSPORINE
     Dosage: 125 MG, QD (50 MG MORNING AND 75MG AT NIGHT)
     Route: 042

REACTIONS (2)
  - Papule [Recovered/Resolved]
  - Pruritus [Recovered/Resolved]

NARRATIVE: CASE EVENT DATE: 20160620
